FAERS Safety Report 13929256 (Version 1)
Quarter: 2017Q3

REPORT INFORMATION
  Report Type: Spontaneous
  Country: US (occurrence: US)
  Receive Date: 20170901
  Receipt Date: 20170901
  Transmission Date: 20171127
  Serious: Yes (Life-Threatening, Hospitalization, Disabling, Other)
  Sender: FDA-Public Use
  Company Number: None

PATIENT
  Age: 36 Year
  Sex: Female
  Weight: 110.7 kg

DRUGS (1)
  1. NEXPLANON [Suspect]
     Active Substance: ETONOGESTREL
     Dosage: ?          QUANTITY:1 IMPLANT;?
     Route: 058
     Dates: start: 20150515, end: 20170831

REACTIONS (3)
  - Drug ineffective [None]
  - Urticaria [None]
  - Hypertension [None]
